FAERS Safety Report 4518722-0 (Version None)
Quarter: 2004Q4

REPORT INFORMATION
  Report Type: 
  Country: None (occurrence: None)
  Receive Date: 20041201
  Receipt Date: 20041118
  Transmission Date: 20050328
  Serious: Yes (Hospitalization, Other)
  Sender: FDA-Public Use
  Company Number: 2004094849

PATIENT
  Age: 47 Year
  Sex: Female

DRUGS (5)
  1. VISTARIL [Suspect]
     Indication: MIGRAINE
     Dosage: INTRAMUSCULAR
     Route: 030
  2. KETOROLAC TROMETHAMINE [Concomitant]
  3. MAGNESIUM CITRATE (MAGNESIUM CITRATE) [Concomitant]
  4. GOLYTELY (MACROGOL, POTASSIUM CHLORIDE, SODIUM BICARBONATE, SODIUM CHL [Concomitant]
  5. VISICOL (SODIUM PHOSPHATE DIBASIC, SODIUM PHOSPHATE MONOBASIC (MONOHYD [Concomitant]

REACTIONS (13)
  - ANION GAP INCREASED [None]
  - BLOOD BICARBONATE DECREASED [None]
  - BLOOD CHLORIDE DECREASED [None]
  - BLOOD POTASSIUM DECREASED [None]
  - BLOOD UREA DECREASED [None]
  - CONVULSION [None]
  - DEPRESSED LEVEL OF CONSCIOUSNESS [None]
  - FALL [None]
  - GRAND MAL CONVULSION [None]
  - INJURY [None]
  - NUCLEAR MAGNETIC RESONANCE IMAGING BRAIN ABNORMAL [None]
  - SPINAL FRACTURE [None]
  - UPPER LIMB FRACTURE [None]
